FAERS Safety Report 8542654-4 (Version None)
Quarter: 2012Q3

REPORT INFORMATION
  Report Type: 
  Country: None (occurrence: None)
  Receive Date: 20120727
  Receipt Date: 20120723
  Transmission Date: 20120928
  Serious: Yes (Other)
  Sender: FDA-Public Use
  Company Number: US-AMGEN-USASP2012033372

PATIENT
  Age: 33 Year
  Sex: Male
  Weight: 61.678 kg

DRUGS (29)
  1. FOSRENOL [Concomitant]
     Dosage: 1000 MG, UNK
  2. GENTAMICIN [Concomitant]
     Dosage: 0.1 %, UNK
  3. MAGNESIUM CHLORIDE [Concomitant]
     Dosage: UNK
  4. SENSIPAR [Concomitant]
     Dosage: 30 MG, UNK
  5. CEFEPIME                           /01263802/ [Concomitant]
  6. ARANESP [Suspect]
     Dosage: 300 MUG, QMO
     Route: 058
     Dates: start: 20120524
  7. CALCITRIOL [Concomitant]
     Dosage: 0.25 MUG, UNK
  8. RENAGEL [Concomitant]
     Dosage: 800 MG, UNK
  9. VANCOMYCIN [Concomitant]
     Dosage: 1200 MG, ONE TIME DOSE
  10. SENSIPAR [Concomitant]
     Dosage: 60 MG, UNK
  11. DIALYVITE [Concomitant]
     Dosage: UNK
  12. FLUZONE                            /00780601/ [Concomitant]
     Dosage: 0.5 ML
  13. ARANESP [Suspect]
     Dosage: 150 MUG, QMO
     Route: 058
     Dates: start: 20120322, end: 20120416
  14. ARANESP [Suspect]
     Dosage: 200 MUG, QMO
     Route: 058
     Dates: start: 20120416, end: 20120524
  15. ARANESP [Suspect]
     Dosage: 60 MUG, UNK
  16. CALCITRIOL [Concomitant]
     Dosage: 0.5 MUG, UNK
  17. HYDROCODONE BITARTRATE AND ACETAMINOPHEN [Concomitant]
     Dosage: 5-325, MG
  18. KAYEXALATE [Concomitant]
  19. RECOMBIVAX [Concomitant]
     Dosage: 40 MUG/ML, UNK
  20. TRAMADOL HYDROCHLORIDE [Concomitant]
  21. TUMS                               /00193601/ [Concomitant]
     Dosage: 500 MG, UNK
  22. ARANESP [Suspect]
     Indication: ANAEMIA
     Dosage: 100 MUG, QMO
     Route: 058
     Dates: start: 20120119, end: 20120322
  23. ALTEPLASE [Concomitant]
     Dosage: 2 MG, UNK
  24. CALCITRIOL [Concomitant]
     Dosage: 1 MUG/ML, UNK
  25. TUBERCULIN NOS [Concomitant]
     Dosage: 5 U.S UNITS (TU)/0.1ML
  26. TUMS                               /00193601/ [Concomitant]
     Dosage: 1000 MG, UNK
  27. CEFAZOLIN [Concomitant]
  28. PNEUMOCOCCAL VACCINE POLYVALENT [Concomitant]
     Dosage: 0.5 ML, UNK
  29. VANCOMYCIN [Concomitant]
     Dosage: 1 G, UNK

REACTIONS (2)
  - HAEMOGLOBIN DECREASED [None]
  - THERAPEUTIC RESPONSE DECREASED [None]
